FAERS Safety Report 4355292-4 (Version None)
Quarter: 2004Q2

REPORT INFORMATION
  Report Type: 
  Country: None (occurrence: None)
  Receive Date: 20040504
  Receipt Date: 20030520
  Transmission Date: 20050107
  Serious: Yes (Hospitalization, Other)
  Sender: FDA-Public Use
  Company Number: 200300166

PATIENT
  Age: 69 Year
  Sex: Male

DRUGS (5)
  1. PEPCID AC [Suspect]
     Indication: DYSPEPSIA
     Dosage: 10 MG PO
     Route: 048
     Dates: start: 20030510, end: 20030510
  2. ACETAMINOPHEN- PROPOXYPHENE HCL TAB [Concomitant]
  3. OMEPRAZOLE [Concomitant]
  4. OMEPRAZOLE [Concomitant]
  5. TEMAZEPAM [Concomitant]

REACTIONS (3)
  - ABDOMINAL PAIN UPPER [None]
  - DIFFICULTY IN WALKING [None]
  - IMPAIRED DRIVING ABILITY [None]
